FAERS Safety Report 20867902 (Version 1)
Quarter: 2022Q2

REPORT INFORMATION
  Report Type: Spontaneous
  Country: CN (occurrence: CN)
  Receive Date: 20220524
  Receipt Date: 20220524
  Transmission Date: 20220720
  Serious: Yes (Other)
  Sender: FDA-Public Use
  Company Number: CN-NOVARTISPH-NVSC2022CN116100

PATIENT
  Age: 35 Year
  Sex: Female

DRUGS (2)
  1. TISLELIZUMAB [Suspect]
     Active Substance: TISLELIZUMAB
     Indication: Transitional cell carcinoma
     Dosage: 200 MG
     Route: 041
     Dates: start: 20220407, end: 20220407
  2. PAZOPANIB [Suspect]
     Active Substance: PAZOPANIB
     Indication: Transitional cell carcinoma
     Dosage: 400 MG
     Route: 065
     Dates: start: 20220406

REACTIONS (4)
  - Hypertension [Recovering/Resolving]
  - Oxygen saturation decreased [Recovering/Resolving]
  - Indifference [Recovering/Resolving]
  - Heart rate increased [Recovering/Resolving]

NARRATIVE: CASE EVENT DATE: 20220407
